FAERS Safety Report 11341219 (Version 1)
Quarter: 2015Q3

REPORT INFORMATION
  Report Type: Spontaneous
  Country: US (occurrence: None)
  Receive Date: 20150803
  Receipt Date: 20150803
  Transmission Date: 20151125
  Serious: No
  Sender: FDA-Public Use
  Company Number: None

PATIENT

DRUGS (1)
  1. CYANOCOBALAMIN 1ML APP PHARMEUTCIALS [Suspect]
     Active Substance: CYANOCOBALAMIN
     Indication: DRUG THERAPY

REACTIONS (3)
  - Musculoskeletal pain [None]
  - Injection site infection [None]
  - Injection site abscess [None]

NARRATIVE: CASE EVENT DATE: 20150727
